FAERS Safety Report 8346977-3 (Version None)
Quarter: 2012Q2

REPORT INFORMATION
  Report Type: 
  Country: None (occurrence: None)
  Receive Date: 20120509
  Receipt Date: 20120424
  Transmission Date: 20120825
  Serious: Yes (Hospitalization)
  Sender: FDA-Public Use
  Company Number: US-VIROPHARMA INCORPORATED-20120424VANCO2925

PATIENT
  Sex: Male

DRUGS (1)
  1. VANCOMYCIN HYDROCHLORIDE [Suspect]
     Indication: CLOSTRIDIAL INFECTION
     Route: 048
     Dates: start: 20120201, end: 20120417

REACTIONS (6)
  - URINARY TRACT INFECTION [None]
  - INFECTED SKIN ULCER [None]
  - PNEUMONIA [None]
  - CLOSTRIDIAL INFECTION [None]
  - NEPHROPATHY TOXIC [None]
  - DRUG LEVEL DECREASED [None]
